FAERS Safety Report 25996622 (Version 1)
Quarter: 2025Q4

REPORT INFORMATION
  Report Type: Report from Study
  Country: US (occurrence: US)
  Receive Date: 20251104
  Receipt Date: 20251104
  Transmission Date: 20260117
  Serious: Yes (Other)
  Sender: ABBVIE
  Company Number: US-ABBVIE-6527437

PATIENT
  Age: 75 Year
  Sex: Female

DRUGS (1)
  1. SKYRIZI [Suspect]
     Active Substance: RISANKIZUMAB-RZAA
     Indication: Psoriasis
     Route: 058
     Dates: start: 20240626

REACTIONS (4)
  - Shoulder operation [Recovered/Resolved]
  - Skin cancer [Recovered/Resolved]
  - Fall [Unknown]
  - Tendon rupture [Unknown]

NARRATIVE: CASE EVENT DATE: 20250301
